FAERS Safety Report 24922552 (Version 3)
Quarter: 2025Q2

REPORT INFORMATION
  Report Type: Spontaneous
  Country: IT (occurrence: IT)
  Receive Date: 20250204
  Receipt Date: 20250422
  Transmission Date: 20250717
  Serious: Yes (Other)
  Sender: AMGEN
  Company Number: IT-AMGEN-ITASP2025020034

PATIENT

DRUGS (3)
  1. ADALIMUMAB [Suspect]
     Active Substance: ADALIMUMAB
     Indication: Rheumatic disorder
     Route: 065
  2. ADALIMUMAB [Suspect]
     Active Substance: ADALIMUMAB
     Indication: Gastrointestinal disorder
  3. ADALIMUMAB [Suspect]
     Active Substance: ADALIMUMAB
     Indication: Skin disorder

REACTIONS (4)
  - Gestational diabetes [Unknown]
  - Thyroid dysfunction in pregnancy [Unknown]
  - Maternal exposure during pregnancy [Unknown]
  - Hypertension [Unknown]
